FAERS Safety Report 5150868-9 (Version None)
Quarter: 2006Q4

REPORT INFORMATION
  Report Type: 
  Country: None (occurrence: None)
  Receive Date: 20061108
  Receipt Date: 19961003
  Transmission Date: 20070319
  Serious: Yes (Hospitalization)
  Sender: FDA-Public Use
  Company Number: 2006119057

PATIENT
  Age: 61 Year
  Sex: Male

DRUGS (1)
  1. IRINOTECAN HCL [Suspect]
     Indication: COLORECTAL CANCER METASTATIC
     Dosage: 150 MG/M*2 (CYCLICALLY), INTRAVENOUS
     Route: 042
     Dates: start: 19960917

REACTIONS (8)
  - ACTIVATED PARTIAL THROMBOPLASTIN TIME PROLONGED [None]
  - ANAEMIA [None]
  - BLOOD CREATININE DECREASED [None]
  - BLOOD POTASSIUM DECREASED [None]
  - BLOOD SODIUM DECREASED [None]
  - INTERNATIONAL NORMALISED RATIO DECREASED [None]
  - PHLEBITIS [None]
  - RED BLOOD CELL SEDIMENTATION RATE INCREASED [None]
